FAERS Safety Report 12840775 (Version 1)
Quarter: 2016Q4

REPORT INFORMATION
  Report Type: Spontaneous
  Country: JP (occurrence: JP)
  Receive Date: 20161012
  Receipt Date: 20161012
  Transmission Date: 20170207
  Serious: Yes (Hospitalization)
  Sender: FDA-Public Use
  Company Number: JP-EISAI MEDICAL RESEARCH-EC-2016-021082

PATIENT
  Age: 60 Year
  Sex: Female
  Weight: 40 kg

DRUGS (2)
  1. RABECURE [Suspect]
     Active Substance: AMOXICILLIN\CLARITHROMYCIN\RABEPRAZOLE
     Indication: HELICOBACTER INFECTION
     Route: 048
     Dates: start: 20160910, end: 20160916
  2. BIOFERMIN R [Suspect]
     Active Substance: BACILLUS SUBTILIS\LACTOBACILLUS ACIDOPHILUS\STREPTOCOCCUS FAECAIS
     Indication: DIARRHOEA
     Route: 048
     Dates: start: 20160910, end: 20160916

REACTIONS (1)
  - Drug eruption [Recovering/Resolving]

NARRATIVE: CASE EVENT DATE: 20160917
